FAERS Safety Report 20937400 (Version 2)
Quarter: 2022Q2

REPORT INFORMATION
  Report Type: Spontaneous
  Country: US (occurrence: US)
  Receive Date: 20220609
  Receipt Date: 20220629
  Transmission Date: 20220721
  Serious: No
  Sender: FDA-Public Use
  Company Number: US-AIMMUNE THERAPEUTICS, INC.-2022AIMT00438

PATIENT

DRUGS (7)
  1. PALFORZIA [Suspect]
     Active Substance: PEANUT
     Indication: Food allergy
     Dosage: 200 MG, 1X/DAY
     Route: 048
     Dates: start: 20220519, end: 20220520
  2. PALFORZIA [Suspect]
     Active Substance: PEANUT
     Dosage: 100 MG, ONCE
     Route: 048
     Dates: start: 20220521, end: 20220521
  3. PALFORZIA [Suspect]
     Active Substance: PEANUT
     Dosage: 160 MG, ONCE
     Route: 048
     Dates: start: 20220522, end: 20220522
  4. PALFORZIA [Suspect]
     Active Substance: PEANUT
     Dosage: 200 MG, 1X/DAY
     Route: 048
     Dates: start: 20220523, end: 20220529
  5. PALFORZIA [Suspect]
     Active Substance: PEANUT
     Dosage: 120 MG, ONCE
     Route: 048
     Dates: start: 20220530, end: 20220530
  6. PALFORZIA [Suspect]
     Active Substance: PEANUT
     Dosage: 160 MG, 1X/DAY
     Route: 048
     Dates: start: 20220531, end: 20220619
  7. PALFORZIA [Suspect]
     Active Substance: PEANUT
     Dosage: 200 MG, 1X/DAY
     Route: 048
     Dates: start: 20220620

REACTIONS (1)
  - Abdominal pain upper [Recovered/Resolved]

NARRATIVE: CASE EVENT DATE: 20220501
